FAERS Safety Report 9654795 (Version 1)
Quarter: 2013Q4

REPORT INFORMATION
  Report Type: Spontaneous
  Country: US (occurrence: US)
  Receive Date: 20131029
  Receipt Date: 20131029
  Transmission Date: 20140711
  Serious: No
  Sender: FDA-Public Use
  Company Number: US-PURDUE-USA-2012-0089901

PATIENT
  Age: 61 Year
  Sex: Female
  Weight: 118.82 kg

DRUGS (2)
  1. OXYCODONE HYDROCHLORIDE (SIMILAR TO NDA 20-553) [Suspect]
     Indication: BACK PAIN
     Dosage: 3 TABLET, TID
     Dates: start: 2005
  2. OXYCODONE HYDROCHLORIDE (SIMILAR TO NDA 20-553) [Suspect]
     Indication: NECK PAIN

REACTIONS (1)
  - Drug effect decreased [Unknown]
